FAERS Safety Report 7219097-9 (Version None)
Quarter: 2011Q1

REPORT INFORMATION
  Report Type: 
  Country: None (occurrence: None)
  Receive Date: 20110111
  Receipt Date: 20110107
  Transmission Date: 20110831
  Serious: Yes (Life-Threatening)
  Sender: FDA-Public Use
  Company Number: US-BAYER-2011-002779

PATIENT
  Sex: Female

DRUGS (1)
  1. YAZ [Suspect]
     Indication: PRODUCT USED FOR UNKNOWN INDICATION

REACTIONS (6)
  - ANXIETY [None]
  - PAIN [None]
  - GALLBLADDER NON-FUNCTIONING [None]
  - FATIGUE [None]
  - EMOTIONAL DISTRESS [None]
  - ORGAN FAILURE [None]
